FAERS Safety Report 4290663-6 (Version None)
Quarter: 2004Q1

REPORT INFORMATION
  Report Type: 
  Country: None (occurrence: None)
  Receive Date: 20040209
  Receipt Date: 20040203
  Transmission Date: 20041129
  Serious: Yes (Hospitalization)
  Sender: FDA-Public Use
  Company Number: 200401528

PATIENT
  Age: 17 Year
  Sex: Female

DRUGS (2)
  1. TYLENOL [Suspect]
     Indication: SUICIDE ATTEMPT
     Dosage: ^A FISTFUL^ PO
     Route: 048
  2. ^OTHER PILLS^ [Suspect]
     Indication: SUICIDE ATTEMPT
     Dosage: ^A FISTFUL^ PO
     Route: 048

REACTIONS (4)
  - DISORIENTATION [None]
  - DIZZINESS [None]
  - FEELING ABNORMAL [None]
  - SUICIDE ATTEMPT [None]
